FAERS Safety Report 24463229 (Version 2)
Quarter: 2024Q4

REPORT INFORMATION
  Report Type: Report from Study
  Country: US (occurrence: US)
  Receive Date: 20241018
  Receipt Date: 20241023
  Transmission Date: 20250115
  Serious: Yes (Life-Threatening, Hospitalization, Other)
  Sender: BRISTOL-MYERS SQUIBB COMPANY
  Company Number: US-BRISTOL-MYERS SQUIBB COMPANY-2024-153204

PATIENT
  Age: 83 Year
  Sex: Female
  Weight: 62.6 kg

DRUGS (9)
  1. LUSPATERCEPT [Suspect]
     Active Substance: LUSPATERCEPT
     Indication: Myelodysplastic syndrome
     Route: 058
     Dates: start: 20230918
  2. PREDNISONE [Concomitant]
     Active Substance: PREDNISONE
     Indication: Product used for unknown indication
     Dosage: TAPER
  3. VANCOMYCIN [Concomitant]
     Active Substance: VANCOMYCIN
     Indication: Product used for unknown indication
     Dosage: VANCOMYCIN X 5 DAYS
  4. ZOSYN [Concomitant]
     Active Substance: PIPERACILLIN SODIUM\TAZOBACTAM SODIUM
     Indication: Product used for unknown indication
     Dosage: ZOSYN X 7 DAYS
  5. ZITHROMAX [Concomitant]
     Active Substance: AZITHROMYCIN DIHYDRATE
     Indication: Product used for unknown indication
     Dosage: ZITHROMAX X 4DAYS
  6. SOLU-MEDROL [Concomitant]
     Active Substance: METHYLPREDNISOLONE SODIUM SUCCINATE
     Indication: Product used for unknown indication
     Dosage: SOL MEDROL
     Route: 042
  7. LASIX [Concomitant]
     Active Substance: FUROSEMIDE
     Indication: Product used for unknown indication
     Route: 042
  8. ROCEPHIN [Concomitant]
     Active Substance: CEFTRIAXONE SODIUM
     Indication: Product used for unknown indication
     Route: 042
  9. ACETAZOLAMIDE [Concomitant]
     Active Substance: ACETAZOLAMIDE
     Indication: Product used for unknown indication
     Route: 042

REACTIONS (12)
  - Acute respiratory failure [Recovered/Resolved]
  - Haemoglobin decreased [Unknown]
  - Metabolic encephalopathy [Unknown]
  - Pleural effusion [Unknown]
  - Lung infiltration [Unknown]
  - Pneumonia [Unknown]
  - Rib fracture [Unknown]
  - Spinal compression fracture [Unknown]
  - Anaemia [Unknown]
  - Escherichia urinary tract infection [Unknown]
  - Chronic kidney disease [Unknown]
  - Fall [Unknown]

NARRATIVE: CASE EVENT DATE: 20240516
